FAERS Safety Report 17931471 (Version 1)
Quarter: 2020Q2

REPORT INFORMATION
  Report Type: Spontaneous
  Country: DE (occurrence: DE)
  Receive Date: 20200623
  Receipt Date: 20200623
  Transmission Date: 20200714
  Serious: Yes (Hospitalization, Other)
  Sender: FDA-Public Use
  Company Number: NVSC2020DE173437

PATIENT
  Age: 78 Year
  Sex: Female

DRUGS (7)
  1. AMLODIPINE [Concomitant]
     Active Substance: AMLODIPINE BESYLATE
     Indication: HYPERTENSION
     Dosage: 5 MG, Q12H (1-0-1)
     Route: 048
  2. CANDESARTAN+HYDROCHLOROTHIAZIDE [Concomitant]
     Active Substance: CANDESARTAN CILEXETIL\HYDROCHLOROTHIAZIDE
     Indication: HYPERTENSION
     Dosage: 1 DF, QD (1-0-0-0)
     Route: 048
  3. PIPERACILLIN SODIUM,TAZOBACTAM SODIUM [Suspect]
     Active Substance: PIPERACILLIN SODIUM\TAZOBACTAM SODIUM
     Indication: BACTERIAL INFECTION
     Dosage: 1 DF, Q8H (1-1-1)
     Route: 042
     Dates: start: 20200320, end: 20200401
  4. PANTOPRAZOLE [Concomitant]
     Active Substance: PANTOPRAZOLE
     Indication: PRODUCT USED FOR UNKNOWN INDICATION
     Dosage: 20 MG, QD (1-0-0-0)
     Route: 048
  5. LEVODOPA/BENSERAZID NEURAXPHARM [Concomitant]
     Active Substance: BENSERAZIDE HYDROCHLORIDE\LEVODOPA
     Indication: RESTLESS LEGS SYNDROME
     Dosage: 1 DF, QD (0-0-1-0)
     Route: 048
  6. MACROGOL [Concomitant]
     Active Substance: POLYETHYLENE GLYCOLS
     Indication: CONSTIPATION PROPHYLAXIS
     Dosage: 2 DF, QD (1-1-0-0)
     Route: 048
  7. MORPHINE SULFATE. [Concomitant]
     Active Substance: MORPHINE SULFATE
     Indication: SPINAL PAIN
     Dosage: 120 MG, QD (2-1-1-0)
     Route: 048

REACTIONS (1)
  - Hypernatraemia [Recovering/Resolving]

NARRATIVE: CASE EVENT DATE: 20200330
